FAERS Safety Report 5219850-7 (Version None)
Quarter: 2007Q1

REPORT INFORMATION
  Report Type: 
  Country: None (occurrence: None)
  Receive Date: 20070125
  Receipt Date: 20070115
  Transmission Date: 20070707
  Serious: Yes (Other)
  Sender: FDA-Public Use
  Company Number: MX-PFIZER INC-2007004840

PATIENT
  Sex: Female
  Weight: 80 kg

DRUGS (3)
  1. HALCION [Suspect]
     Indication: INSOMNIA
     Route: 048
  2. LEXOTAN [Concomitant]
  3. ALL OTHER THERAPEUTIC PRODUCTS [Concomitant]

REACTIONS (8)
  - ANOREXIA [None]
  - ANXIETY [None]
  - BONE PAIN [None]
  - DEPRESSION [None]
  - DIABETES MELLITUS [None]
  - DRUG DEPENDENCE [None]
  - INSOMNIA [None]
  - PANIC REACTION [None]
